FAERS Safety Report 19646575 (Version 1)
Quarter: 2021Q3

REPORT INFORMATION
  Report Type: Spontaneous
  Country: US (occurrence: US)
  Receive Date: 20210802
  Receipt Date: 20210802
  Transmission Date: 20211014
  Serious: Yes (Other)
  Sender: FDA-Public Use
  Company Number: US-LUPIN PHARMACEUTICALS INC.-2021-13458

PATIENT
  Age: 32 Year
  Sex: Female

DRUGS (5)
  1. DABIGATRAN [Concomitant]
     Active Substance: DABIGATRAN
     Indication: EMBOLISM VENOUS
     Dosage: UNK
     Route: 065
  2. TRANEXAMIC ACID. [Concomitant]
     Active Substance: TRANEXAMIC ACID
     Indication: HAEMOPTYSIS
     Dosage: UNK
     Route: 065
  3. ELEXACAFTOR;IVACAFTOR;TEZACAFTOR [Concomitant]
     Active Substance: ELEXACAFTOR\IVACAFTOR\TEZACAFTOR
     Indication: HAEMOPTYSIS
     Dosage: UNK
     Route: 065
  4. LEVONORGESTREL. [Suspect]
     Active Substance: LEVONORGESTREL
     Indication: HAEMOPTYSIS
     Dosage: UNK
     Route: 015
  5. DABIGATRAN [Concomitant]
     Active Substance: DABIGATRAN
     Dosage: UNK?TAPERED DOSE
     Route: 065

REACTIONS (2)
  - Heavy menstrual bleeding [Recovered/Resolved]
  - Drug ineffective [Unknown]
